FAERS Safety Report 20055508 (Version 2)
Quarter: 2021Q4

REPORT INFORMATION
  Report Type: Spontaneous
  Country: JP (occurrence: JP)
  Receive Date: 20211110
  Receipt Date: 20211110
  Transmission Date: 20220303
  Serious: Yes (Other)
  Sender: FDA-Public Use
  Company Number: JP-SAKK-00846253

PATIENT
  Sex: Male

DRUGS (2)
  1. LANTUS SOLOSTAR [Suspect]
     Active Substance: INSULIN GLARGINE
     Indication: Product used for unknown indication
     Dosage: UNK
     Route: 058
  2. LANTUS SOLOSTAR [Suspect]
     Active Substance: INSULIN GLARGINE
     Dosage: 12 UNITS
     Route: 058

REACTIONS (6)
  - Retinal haemorrhage [Unknown]
  - Blindness [Unknown]
  - Protein urine [Unknown]
  - Blood glucose fluctuation [Unknown]
  - Therapeutic product effect variable [Unknown]
  - Product storage error [Unknown]
